FAERS Safety Report 7332346-1 (Version None)
Quarter: 2011Q1

REPORT INFORMATION
  Report Type: 
  Country: None (occurrence: None)
  Receive Date: 20110304
  Receipt Date: 20110303
  Transmission Date: 20110831
  Serious: Yes (Death, Life-Threatening, Hospitalization, Disabling)
  Sender: FDA-Public Use
  Company Number: A0910026A

PATIENT
  Age: 52 Year
  Sex: Female

DRUGS (1)
  1. PROMACTA [Suspect]
     Dosage: 25MG PER DAY
     Route: 048
     Dates: start: 20101215

REACTIONS (11)
  - JAUNDICE [None]
  - VIRAL INFECTION [None]
  - BACTERAEMIA [None]
  - SEPSIS [None]
  - BIOPSY LIVER [None]
  - BLOOD BILIRUBIN INCREASED [None]
  - HEPATIC FUNCTION ABNORMAL [None]
  - HEPATIC FAILURE [None]
  - RESPIRATORY DISTRESS [None]
  - HEPATITIS C [None]
  - ENCEPHALOPATHY [None]
